FAERS Safety Report 16190458 (Version 1)
Quarter: 2019Q2

REPORT INFORMATION
  Report Type: Spontaneous
  Country: US (occurrence: US)
  Receive Date: 20190412
  Receipt Date: 20190412
  Transmission Date: 20190711
  Serious: No
  Sender: FDA-Public Use
  Company Number: US-PFIZER INC-2018221152

PATIENT
  Age: 10 Month
  Sex: Male
  Weight: 14.51 kg

DRUGS (3)
  1. CETIRIZINE HYDROCHLORIDE. [Concomitant]
     Active Substance: CETIRIZINE HYDROCHLORIDE
     Indication: HYPERSENSITIVITY
     Dosage: 2.5 ML, 1X/DAY [IT IS HCL 1 MG/ML SOLUTION]
  2. EUCRISA [Suspect]
     Active Substance: CRISABOROLE
     Indication: DERMATITIS ATOPIC
     Dosage: UNK
  3. EUCRISA [Suspect]
     Active Substance: CRISABOROLE
     Indication: ECZEMA
     Dosage: UNK, 2X/DAY [A THIN LAYER TWICE A DAY ON A LEG/2 PERCENT FOR TOPICAL USE 60 GRAM]
     Route: 061

REACTIONS (2)
  - Product use issue [Unknown]
  - Drug ineffective [Unknown]
